FAERS Safety Report 8003572-3 (Version None)
Quarter: 2011Q4

REPORT INFORMATION
  Report Type: 
  Country: None (occurrence: None)
  Receive Date: 20111222
  Receipt Date: 20111216
  Transmission Date: 20120403
  Serious: Yes (Hospitalization)
  Sender: FDA-Public Use
  Company Number: IE-MEDIMMUNE-MEDI-0014238

PATIENT
  Sex: Female
  Weight: 5.92 kg

DRUGS (3)
  1. FUROSEMIDE [Concomitant]
  2. SYNAGIS [Suspect]
     Route: 030
     Dates: start: 20111021, end: 20111021
  3. SPIRONOLACTONE [Concomitant]

REACTIONS (2)
  - SURGERY [None]
  - PYREXIA [None]
